FAERS Safety Report 11192498 (Version 1)
Quarter: 2015Q2

REPORT INFORMATION
  Report Type: Spontaneous
  Country: US (occurrence: US)
  Receive Date: 20150616
  Receipt Date: 20150616
  Transmission Date: 20150821
  Serious: No
  Sender: FDA-Public Use
  Company Number: US-PFIZER INC-2015197937

PATIENT
  Sex: Female
  Weight: 102 kg

DRUGS (1)
  1. NEURONTIN [Suspect]
     Active Substance: GABAPENTIN
     Indication: SYRINGOMYELIA
     Dosage: UNK

REACTIONS (4)
  - Visual impairment [Unknown]
  - Drug effect incomplete [Unknown]
  - Somnolence [Unknown]
  - Weight increased [Unknown]
